FAERS Safety Report 8948498 (Version 1)
Quarter: 2012Q4

REPORT INFORMATION
  Report Type: Spontaneous
  Country: AT (occurrence: None)
  Receive Date: 20121123
  Receipt Date: 20121123
  Transmission Date: 20130627
  Serious: Yes (Hospitalization)
  Sender: FDA-Public Use
  Company Number: DSA_61026_2012

PATIENT
  Age: 57 Year
  Sex: Male

DRUGS (10)
  1. FLUOROURACIL (FLUOROURACIL) [Suspect]
     Indication: METASTATIC NEOPLASM
     Dosage: (400 mg/m2)
(09/07/2012 to continuing)
     Dates: start: 20120907
  2. FLUOROURACIL (FLUOROURACIL) [Suspect]
     Indication: METASTATIC NEOPLASM
  3. AFLIBERCEPT [Suspect]
     Indication: METASTATIC NEOPLASM
     Dosage: (4   mg/m2),  (4  mg/m2)
(09/07/2012 to 09/07/2012, (10/05/2012 to 10/05/2012)
     Dates: start: 20120907, end: 20120907
  4. AFLIBERCEPT [Suspect]
     Indication: METASTATIC NEOPLASM
     Dates: start: 20121005, end: 20121005
  5. IRINOTECAN [Suspect]
     Indication: METASTATIC NEOPLASM
     Dosage: (180  mg/m2)
(09/07/2012 to continuing)
     Dates: start: 20120907
  6. LEUCOVORIN [Suspect]
     Indication: METASTATIC NEOPLASM
     Dosage: (200  mg/m2)
(09/07/2012 to continuing)
     Dates: start: 20120907
  7. DUROGESIC [Concomitant]
  8. MAGNESIUM [Concomitant]
  9. NOVALGIN [Suspect]
  10. LACTULOSE [Concomitant]

REACTIONS (3)
  - Abdominal pain upper [None]
  - Cholangitis [None]
  - General physical health deterioration [None]
